FAERS Safety Report 13932907 (Version 1)
Quarter: 2017Q3

REPORT INFORMATION
  Report Type: Spontaneous
  Country: CN (occurrence: CN)
  Receive Date: 20170904
  Receipt Date: 20170904
  Transmission Date: 20171127
  Serious: Yes (Hospitalization, Other)
  Sender: FDA-Public Use
  Company Number: CN-PFIZER INC-2017379530

PATIENT
  Age: 69 Year
  Sex: Male
  Weight: 68 kg

DRUGS (8)
  1. BETALOC [Concomitant]
     Active Substance: METOPROLOL TARTRATE
     Indication: CARDIAC FAILURE
     Dosage: 6.25 MG, 1X/DAY
     Route: 048
     Dates: start: 20170710, end: 20170717
  2. LIPITOR [Suspect]
     Active Substance: ATORVASTATIN CALCIUM
     Indication: ARTERIOSCLEROSIS
     Dosage: 20 MG, 1X/DAY
     Route: 048
     Dates: start: 20170710, end: 20170716
  3. DIGOXIN. [Concomitant]
     Active Substance: DIGOXIN
     Indication: CARDIAC FAILURE
     Dosage: 0.125 MG, 1X/DAY
     Route: 048
     Dates: start: 20170710, end: 20170717
  4. COLCHICINE. [Concomitant]
     Active Substance: COLCHICINE
     Indication: GOUT
     Dosage: 0.5 MG, 3X/DAY
     Route: 048
     Dates: start: 20170710, end: 20170717
  5. CLOPIDOGREL HYDROGEN SULFATE [Suspect]
     Active Substance: CLOPIDOGREL BISULFATE
     Indication: THROMBOSIS
     Dosage: 50 MG, 1X/DAY
     Route: 048
     Dates: start: 20170710, end: 20170716
  6. SPIRONOLACTONE. [Suspect]
     Active Substance: SPIRONOLACTONE
     Indication: DIURETIC THERAPY
     Dosage: 20 MG, 2X/DAY
     Route: 048
     Dates: start: 20170710, end: 20170716
  7. DABIGATRAN ETEXILATE [Concomitant]
     Active Substance: DABIGATRAN ETEXILATE
     Indication: PLATELET DISORDER
     Dosage: 110 MG, 2X/DAY
     Route: 048
     Dates: start: 20170710, end: 20170717
  8. BUMETANIDE. [Suspect]
     Active Substance: BUMETANIDE
     Indication: POLYURIA
     Dosage: 1 MG, 1X/DAY
     Route: 048
     Dates: start: 20170710, end: 20170716

REACTIONS (2)
  - Condition aggravated [Not Recovered/Not Resolved]
  - Renal impairment [Not Recovered/Not Resolved]

NARRATIVE: CASE EVENT DATE: 20170717
